FAERS Safety Report 8157480 (Version 4)
Quarter: 2013Q1

REPORT INFORMATION
  Report Type: Spontaneous
  Country: US (occurrence: US)
  Receive Date: 20110927
  Receipt Date: 20130214
  Transmission Date: 20140127
  Serious: Yes (Other)
  Sender: FDA-Public Use
  Company Number: US-ASTRAZENECA-2011SE12489

PATIENT
  Sex: Female

DRUGS (11)
  1. SEROQUEL [Suspect]
     Route: 048
     Dates: start: 20030605
  2. SEROQUEL [Suspect]
     Dosage: 100 - 200 MG
     Route: 048
     Dates: start: 20030809
  3. SEROQUEL [Suspect]
     Dosage: 400 TO 600 MG AT BEDTIME
     Route: 048
     Dates: start: 20100425
  4. INDERAL LA [Concomitant]
     Dates: start: 20030926
  5. BENZTROPINE MES [Concomitant]
     Dates: start: 20030530
  6. BENZTROPINE MES [Concomitant]
     Route: 048
     Dates: start: 20100521
  7. CYPROHEPTADINE [Concomitant]
     Dates: start: 20030605
  8. HYDROCODONE APAP [Concomitant]
     Dosage: 2.5-500 TAKE 1 OR 2 TABLET(S) EVERY 4 TO 6
     Dates: start: 20030805
  9. LITHIUM CARBONATE [Concomitant]
     Route: 048
     Dates: start: 20100521
  10. DIVALPROEX SOD ER [Concomitant]
     Dates: start: 20100521
  11. RANITIDINE [Concomitant]
     Dates: start: 20030716

REACTIONS (3)
  - Pancreatitis [Unknown]
  - Diabetic coma [Unknown]
  - Type 2 diabetes mellitus [Unknown]
